FAERS Safety Report 17726371 (Version 1)
Quarter: 2020Q2

REPORT INFORMATION
  Report Type: Spontaneous
  Country: RO (occurrence: RO)
  Receive Date: 20200430
  Receipt Date: 20200430
  Transmission Date: 20200714
  Serious: Yes (Hospitalization, Other)
  Sender: FDA-Public Use
  Company Number: RO-SUN PHARMACEUTICAL INDUSTRIES LTD-2020RR-245588

PATIENT

DRUGS (2)
  1. UNIQUET [Suspect]
     Active Substance: QUETIAPINE
     Indication: PRODUCT USED FOR UNKNOWN INDICATION
     Dosage: APPROXIMETELY 50 PILLS
     Route: 048
  2. OMEPRAZOLE. [Suspect]
     Active Substance: OMEPRAZOLE
     Indication: PRODUCT USED FOR UNKNOWN INDICATION
     Dosage: 7 PILLS
     Route: 048

REACTIONS (4)
  - Acute respiratory failure [Unknown]
  - Coma [Unknown]
  - Suicide attempt [Unknown]
  - Pneumonia [Unknown]
